FAERS Safety Report 8849994 (Version 1)
Quarter: 2012Q4

REPORT INFORMATION
  Report Type: 
  Country: US (occurrence: US)
  Receive Date: 20121019
  Receipt Date: 20121019
  Transmission Date: 20130627
  Serious: Yes (Death)
  Sender: FDA-Public Use
  Company Number: US-PURDUE-USA-2012-0094753

PATIENT
  Sex: Female

DRUGS (1)
  1. BUTRANS [Suspect]
     Indication: BACK PAIN
     Dosage: 10 mcg/hr, UNK
     Route: 062

REACTIONS (1)
  - Malignant neoplasm progression [Fatal]
